FAERS Safety Report 16834895 (Version 1)
Quarter: 2019Q3

REPORT INFORMATION
  Report Type: Spontaneous
  Country: US (occurrence: US)
  Receive Date: 20190920
  Receipt Date: 20190920
  Transmission Date: 20191005
  Serious: No
  Sender: FDA-Public Use
  Company Number: US-ELI_LILLY_AND_COMPANY-US201909010041

PATIENT
  Sex: Male

DRUGS (2)
  1. EMGALITY [Suspect]
     Active Substance: GALCANEZUMAB-GNLM
     Indication: CLUSTER HEADACHE
     Dosage: 300 MG, UNKNOWN
     Route: 058
     Dates: start: 201906
  2. DOXYCYCLINE. [Interacting]
     Active Substance: DOXYCYCLINE
     Indication: INFECTION
     Dosage: 100 MG, UNKNOWN
     Route: 065

REACTIONS (2)
  - Infection [Not Recovered/Not Resolved]
  - Drug interaction [Unknown]
